FAERS Safety Report 8041429-2 (Version None)
Quarter: 2012Q1

REPORT INFORMATION
  Report Type: 
  Country: None (occurrence: None)
  Receive Date: 20120112
  Receipt Date: 20120109
  Transmission Date: 20120608
  Serious: Yes (Other)
  Sender: FDA-Public Use
  Company Number: US-PFIZER INC-2012006790

PATIENT
  Sex: Female
  Weight: 68.934 kg

DRUGS (4)
  1. FOSAMAX [Concomitant]
     Indication: OSTEOPOROSIS
     Dosage: UNK, ONCE A WEEK
  2. TOVIAZ [Suspect]
     Dosage: 8 MG, UNK
  3. OXYBUTYNIN [Suspect]
     Indication: URINARY INCONTINENCE
     Dosage: UNK
     Dates: end: 20111221
  4. TOVIAZ [Suspect]
     Indication: URINARY INCONTINENCE
     Dosage: 4 MG, UNK
     Dates: start: 20111221

REACTIONS (5)
  - DEHYDRATION [None]
  - VISION BLURRED [None]
  - DIZZINESS [None]
  - DEMENTIA [None]
  - DRY MOUTH [None]
